FAERS Safety Report 4950379-7 (Version None)
Quarter: 2006Q1

REPORT INFORMATION
  Report Type: 
  Country: None (occurrence: None)
  Receive Date: 20060322
  Receipt Date: 20060315
  Transmission Date: 20060701
  Serious: Yes (Other)
  Sender: FDA-Public Use
  Company Number: GB-AVENTIS-200611613EU

PATIENT
  Age: 66 Year
  Sex: Male

DRUGS (1)
  1. FRUSEMIDE [Suspect]
     Indication: CARDIAC FAILURE

REACTIONS (1)
  - PEMPHIGOID [None]
